FAERS Safety Report 6628371-6 (Version None)
Quarter: 2010Q1

REPORT INFORMATION
  Report Type: 
  Country: None (occurrence: None)
  Receive Date: 20100311
  Receipt Date: 20100308
  Transmission Date: 20100710
  Serious: Yes (Hospitalization)
  Sender: FDA-Public Use
  Company Number: CA-ELI_LILLY_AND_COMPANY-CA201003002428

PATIENT
  Sex: Male

DRUGS (17)
  1. GEMCITABINE HCL [Suspect]
     Indication: PANCREATIC CARCINOMA
     Dosage: 2200 MG, OTHER
     Route: 042
     Dates: start: 20100204, end: 20100225
  2. ATORVASTATIN CALCIUM [Concomitant]
     Dosage: UNK, UNK
     Route: 048
     Dates: start: 19990101
  3. BISOPROLOL FUMARATE [Concomitant]
     Indication: HYPERTENSION
     Dosage: UNK, UNK
     Route: 048
     Dates: start: 20090101
  4. ACETYLSALICYLIC ACID [Concomitant]
     Indication: PROPHYLAXIS
     Dosage: UNK, UNK
     Route: 048
     Dates: start: 19990101
  5. ACETYLSALICYLIC ACID [Concomitant]
     Route: 048
     Dates: start: 19990101
  6. ZOPICLONE [Concomitant]
     Indication: INSOMNIA
     Route: 048
     Dates: start: 19990101
  7. RAMIPRIL [Concomitant]
     Indication: HYPERTENSION
     Route: 048
     Dates: start: 20060101
  8. SENNOSIDE [Concomitant]
     Indication: CONSTIPATION
     Route: 048
     Dates: start: 20050101
  9. HYDROMORPHONE HCL [Concomitant]
     Indication: PAIN
     Route: 048
     Dates: start: 20091201
  10. DOCUSATE [Concomitant]
     Indication: CONSTIPATION
     Route: 048
     Dates: start: 20050101
  11. ACETAMINOPHEN [Concomitant]
     Indication: ABDOMINAL PAIN
     Route: 048
     Dates: start: 20090101
  12. DEXAMETHASONE [Concomitant]
     Indication: PROPHYLAXIS
     Route: 042
     Dates: start: 20100204
  13. ONDANSETRON [Concomitant]
     Indication: PROPHYLAXIS
     Route: 042
     Dates: start: 20100218
  14. TINZAPARIN [Concomitant]
     Indication: MITRAL VALVE INCOMPETENCE
     Route: 048
     Dates: start: 20100121
  15. METHADONE HYDROCHLORIDE [Concomitant]
     Indication: PAIN
     Route: 048
     Dates: start: 20100210
  16. LACTULOSE [Concomitant]
     Indication: CONSTIPATION
     Route: 048
     Dates: start: 20100218
  17. PANTOPRAZOLE SODIUM [Concomitant]
     Route: 048
     Dates: start: 20100203

REACTIONS (1)
  - GENERAL PHYSICAL HEALTH DETERIORATION [None]
